FAERS Safety Report 16135031 (Version 1)
Quarter: 2019Q1

REPORT INFORMATION
  Report Type: Spontaneous
  Country: CA (occurrence: CA)
  Receive Date: 20190329
  Receipt Date: 20190329
  Transmission Date: 20190418
  Serious: Yes (Other)
  Sender: FDA-Public Use
  Company Number: CA-JNJFOC-20190329241

PATIENT
  Sex: Female

DRUGS (1)
  1. TOPAMAX [Suspect]
     Active Substance: TOPIRAMATE
     Indication: MIGRAINE PROPHYLAXIS
     Route: 048

REACTIONS (12)
  - Sleep disorder [Unknown]
  - Loss of consciousness [Unknown]
  - Respiration abnormal [Unknown]
  - Sensory overload [Unknown]
  - Confusional state [Unknown]
  - Disturbance in attention [Unknown]
  - Sensory disturbance [Unknown]
  - Pollakiuria [Unknown]
  - Staring [Unknown]
  - Unresponsive to stimuli [Unknown]
  - Amnesia [Unknown]
  - Photosensitivity reaction [Unknown]
